FAERS Safety Report 7039194-0 (Version None)
Quarter: 2010Q4

REPORT INFORMATION
  Report Type: 
  Country: None (occurrence: None)
  Receive Date: 20101012
  Receipt Date: 20101001
  Transmission Date: 20110411
  Serious: Yes (Death, Other)
  Sender: FDA-Public Use
  Company Number: US-TYCO HEALTHCARE/MALLINCKRODT-T201002084

PATIENT
  Sex: Female

DRUGS (3)
  1. OPTIMARK [Suspect]
     Indication: IMAGING PROCEDURE
     Dosage: UNK
  2. OMNISCAN [Suspect]
     Indication: IMAGING PROCEDURE
     Dosage: UNK
  3. MAGNEVIST [Suspect]
     Indication: IMAGING PROCEDURE
     Dosage: UNK

REACTIONS (2)
  - DEATH [None]
  - NEPHROGENIC SYSTEMIC FIBROSIS [None]
